FAERS Safety Report 25369680 (Version 1)
Quarter: 2025Q2

REPORT INFORMATION
  Report Type: Spontaneous
  Country: JP (occurrence: JP)
  Receive Date: 20250528
  Receipt Date: 20250528
  Transmission Date: 20250717
  Serious: Yes (Other)
  Sender: ELI LILLY AND COMPANY
  Company Number: JP-Merck Healthcare KGaA-2025026805

PATIENT
  Age: 65 Year
  Sex: Male

DRUGS (6)
  1. ERBITUX [Suspect]
     Active Substance: CETUXIMAB
     Indication: Rectosigmoid cancer
     Route: 041
  2. FLUOROURACIL [Concomitant]
     Active Substance: FLUOROURACIL
     Indication: Rectosigmoid cancer
  3. OXALIPLATIN [Concomitant]
     Active Substance: OXALIPLATIN
     Indication: Rectosigmoid cancer
  4. LEVOLEUCOVORIN CALCIUM [Concomitant]
     Active Substance: LEVOLEUCOVORIN CALCIUM
     Indication: Rectosigmoid cancer
  5. MINOCYCLINE [Concomitant]
     Active Substance: MINOCYCLINE HYDROCHLORIDE
     Indication: Premedication
  6. HEPARINOID [Concomitant]
     Indication: Premedication

REACTIONS (2)
  - Proctectomy [Unknown]
  - Urinary cystectomy [Unknown]

NARRATIVE: CASE EVENT DATE: 20241201
